FAERS Safety Report 5584135-6 (Version None)
Quarter: 2008Q1

REPORT INFORMATION
  Report Type: 
  Country: None (occurrence: None)
  Receive Date: 20080108
  Receipt Date: 20071228
  Transmission Date: 20080703
  Serious: Yes (Hospitalization)
  Sender: FDA-Public Use
  Company Number: US-AMGEN-STX258512

PATIENT
  Sex: Female

DRUGS (2)
  1. ENBREL [Suspect]
     Indication: RHEUMATOID ARTHRITIS
     Route: 058
     Dates: start: 19990201
  2. METHOTREXATE [Concomitant]
     Route: 048
     Dates: start: 19980101

REACTIONS (5)
  - FEMUR FRACTURE [None]
  - PAIN IN EXTREMITY [None]
  - RED BLOOD CELL SEDIMENTATION RATE INCREASED [None]
  - REVISION OF INTERNAL FIXATION [None]
  - RHEUMATOID ARTHRITIS [None]
